FAERS Safety Report 12221092 (Version 1)
Quarter: 2016Q1

REPORT INFORMATION
  Report Type: Spontaneous
  Country: CH (occurrence: DE)
  Receive Date: 20160330
  Receipt Date: 20160330
  Transmission Date: 20160526
  Serious: Yes (Hospitalization)
  Sender: FDA-Public Use
  Company Number: CH-LPDUSPRD-20160260

PATIENT
  Age: 53 Year
  Sex: Male
  Weight: 89 kg

DRUGS (2)
  1. RAMIPRIL. [Concomitant]
     Active Substance: RAMIPRIL
     Dosage: DOSE NOT PROVIDED
     Route: 048
  2. FERINJECT [Suspect]
     Active Substance: FERRIC CARBOXYMALTOSE
     Dosage: 1000MG/250ML NACL OVER 30 MIN
     Route: 041
     Dates: start: 20150511, end: 20150821

REACTIONS (2)
  - Asthma [Unknown]
  - Chronic obstructive pulmonary disease [Unknown]

NARRATIVE: CASE EVENT DATE: 20151102
